FAERS Safety Report 9448891 (Version 1)
Quarter: 2013Q3

REPORT INFORMATION
  Report Type: Report from Study
  Country: DE (occurrence: DE)
  Receive Date: 20130808
  Receipt Date: 20130808
  Transmission Date: 20140515
  Serious: Yes (Hospitalization)
  Sender: FDA-Public Use
  Company Number: DE-BRISTOL-MYERS SQUIBB COMPANY-14706493

PATIENT
  Age: 66 Year
  Sex: Female

DRUGS (4)
  1. ABATACEPT [Suspect]
     Indication: RHEUMATOID ARTHRITIS
     Route: 042
     Dates: start: 200809
  2. LEFLUNOMIDE [Suspect]
     Indication: RHEUMATOID ARTHRITIS
     Dates: start: 200101
  3. RITUXIMAB [Suspect]
     Dates: start: 20100420
  4. PREDNISOLONE [Concomitant]

REACTIONS (3)
  - Tachycardia [Recovered/Resolved]
  - Erysipelas [Unknown]
  - C-reactive protein increased [Unknown]
